FAERS Safety Report 4383482-3 (Version None)
Quarter: 2004Q2

REPORT INFORMATION
  Report Type: 
  Country: None (occurrence: None)
  Receive Date: 20040623
  Receipt Date: 20040604
  Transmission Date: 20050107
  Serious: Yes (Other)
  Sender: FDA-Public Use
  Company Number: 200411946JP

PATIENT
  Age: 85 Year
  Sex: Female

DRUGS (7)
  1. KETEK [Suspect]
     Indication: BRONCHITIS
     Route: 048
     Dates: start: 20040329, end: 20040329
  2. MEDICON [Concomitant]
     Indication: COUGH
     Route: 048
     Dates: start: 20040329, end: 20040402
  3. MUCODYNE [Concomitant]
     Indication: RESPIRATORY DISORDER
     Route: 048
     Dates: start: 20040329, end: 20040402
  4. INSULIN [Concomitant]
     Indication: BLOOD GLUCOSE DECREASED
     Dosage: DOSE: UNK
     Route: 058
  5. AMLODIPINE [Concomitant]
     Indication: HYPERTENSION
     Route: 048
  6. NU-LOTAN [Concomitant]
     Indication: HYPERTENSION
     Route: 048
  7. TENORMIN [Concomitant]
     Indication: HYPERTENSION
     Route: 048

REACTIONS (5)
  - BLOOD PRESSURE INCREASED [None]
  - GLYCOSYLATED HAEMOGLOBIN INCREASED [None]
  - HYPOGLYCAEMIA [None]
  - LOSS OF CONSCIOUSNESS [None]
  - SYNCOPE [None]
